FAERS Safety Report 8780737 (Version 1)
Quarter: 2012Q4

REPORT INFORMATION
  Report Type: 
  Country: US (occurrence: US)
  Receive Date: 20120913
  Receipt Date: 20120913
  Transmission Date: 20130627
  Serious: No
  Sender: FDA-Public Use
  Company Number: US-PFIZER INC-2012223135

PATIENT
  Age: 44 Year

DRUGS (1)
  1. LYRICA [Suspect]
     Dosage: UNK
     Dates: start: 2009

REACTIONS (2)
  - Energy increased [Unknown]
  - Therapeutic response unexpected [Unknown]
